FAERS Safety Report 5170555-0 (Version None)
Quarter: 2006Q4

REPORT INFORMATION
  Report Type: 
  Country: None (occurrence: None)
  Receive Date: 20061204
  Receipt Date: 20061117
  Transmission Date: 20070319
  Serious: Yes (Hospitalization)
  Sender: FDA-Public Use
  Company Number: WAES 0609USA02260

PATIENT
  Age: 50 Year
  Sex: Female

DRUGS (12)
  1. SINGULAIR [Suspect]
     Indication: ASTHMA
     Dosage: 7 MG/1X
     Route: 042
     Dates: start: 20060906, end: 20060906
  2. ADONA [Concomitant]
  3. ALLELOCK [Concomitant]
  4. CINAL [Concomitant]
  5. GASTER D [Concomitant]
  6. PREDNISOLONE [Concomitant]
  7. PULMICORT [Concomitant]
  8. TRANSAMIN [Concomitant]
  9. THERAPY UNSPECIFIED [Concomitant]
  10. ALBUTEROL SULATE [Concomitant]
  11. METHYLPREDNISOLONE SODIUM SUCCINATE [Concomitant]
  12. THEOPHYLLINE [Concomitant]

REACTIONS (12)
  - ASTHMA [None]
  - CHOLECYSTITIS [None]
  - CHOLELITHIASIS [None]
  - DIARRHOEA [None]
  - FATIGUE [None]
  - GASTRITIS [None]
  - GASTRITIS ATROPHIC [None]
  - GASTROENTERITIS EOSINOPHILIC [None]
  - PANCREATIC DISORDER [None]
  - PETECHIAE [None]
  - REFLUX OESOPHAGITIS [None]
  - STRESS [None]
